FAERS Safety Report 8924514 (Version 2)
Quarter: 2013Q1

REPORT INFORMATION
  Report Type: Spontaneous
  Country: US (occurrence: US)
  Receive Date: 20121127
  Receipt Date: 20130122
  Transmission Date: 20140127
  Serious: No
  Sender: FDA-Public Use
  Company Number: US-009507513-1211USA009549

PATIENT
  Age: 18 None
  Sex: Female
  Weight: 70.75 kg

DRUGS (1)
  1. IMPLANON [Suspect]
     Indication: CONTRACEPTION
     Dosage: UNK
     Route: 059
     Dates: start: 20121108

REACTIONS (4)
  - Muscle spasms [Unknown]
  - Pain in extremity [Unknown]
  - Metrorrhagia [Unknown]
  - Metrorrhagia [Unknown]
